FAERS Safety Report 9465013 (Version 3)
Quarter: 2014Q2

REPORT INFORMATION
  Report Type: Spontaneous
  Country: US (occurrence: US)
  Receive Date: 20130819
  Receipt Date: 20140401
  Transmission Date: 20141212
  Serious: Yes (Congenital Anomaly)
  Sender: FDA-Public Use
  Company Number: US-GLAXOSMITHKLINE-A1038092A

PATIENT
  Age: 0 Day
  Sex: Male

DRUGS (1)
  1. PAXIL [Suspect]
     Indication: DEPRESSION
     Dosage: 20MG PER DAY
     Route: 064
     Dates: start: 1993, end: 1994

REACTIONS (4)
  - Ventricular septal defect [Unknown]
  - Congenital cardiovascular anomaly [Unknown]
  - Injury [Unknown]
  - Foetal exposure during pregnancy [Unknown]
